FAERS Safety Report 7324556-4 (Version None)
Quarter: 2011Q1

REPORT INFORMATION
  Report Type: 
  Country: None (occurrence: None)
  Receive Date: 20110301
  Receipt Date: 20110224
  Transmission Date: 20110831
  Serious: Yes (Hospitalization)
  Sender: FDA-Public Use
  Company Number: PHHO2011FR02377

PATIENT
  Sex: Female
  Weight: 31.3 kg

DRUGS (7)
  1. NO TREATMENT RECEIVED [Suspect]
     Dosage: 4 MG, UNK
     Route: 042
  2. CALCIUM [Concomitant]
     Indication: BONE SARCOMA
  3. IFOSFAMIDE [Suspect]
     Indication: BONE SARCOMA
     Dosage: UNK
     Route: 042
     Dates: start: 20100215
  4. METHOTREXATE [Concomitant]
     Indication: BONE SARCOMA
     Dosage: UNK
     Route: 042
     Dates: start: 20100125
  5. VITAMIN D [Concomitant]
     Indication: BONE SARCOMA
  6. PHOSPHONEUROS [Concomitant]
  7. VP-16 [Concomitant]
     Indication: BONE SARCOMA
     Dosage: UNK
     Route: 042
     Dates: start: 20100215

REACTIONS (3)
  - CYSTITIS HAEMORRHAGIC [None]
  - DYSURIA [None]
  - HAEMATURIA [None]
